FAERS Safety Report 6547260-9 (Version None)
Quarter: 2010Q1

REPORT INFORMATION
  Report Type: 
  Country: None (occurrence: None)
  Receive Date: 20100122
  Receipt Date: 20090721
  Transmission Date: 20100710
  Serious: No
  Sender: FDA-Public Use
  Company Number: US-BAUSCH-2009BL003648

PATIENT
  Age: 30 Year
  Sex: Female

DRUGS (2)
  1. ZYLET [Suspect]
     Indication: CORNEAL OEDEMA
     Route: 047
     Dates: start: 20090718, end: 20090718
  2. VIGAMOX [Concomitant]

REACTIONS (3)
  - EYELID OEDEMA [None]
  - HYPERSENSITIVITY [None]
  - RASH [None]
